FAERS Safety Report 6802230-8 (Version None)
Quarter: 2010Q2

REPORT INFORMATION
  Report Type: 
  Country: None (occurrence: None)
  Receive Date: 20100628
  Receipt Date: 20100621
  Transmission Date: 20101027
  Serious: Yes (Other)
  Sender: FDA-Public Use
  Company Number: US-BIOGENIDEC-2010BI011938

PATIENT
  Age: 67 Year
  Sex: Female

DRUGS (2)
  1. TYSABRI [Suspect]
     Indication: MULTIPLE SCLEROSIS
     Route: 042
     Dates: start: 20070223
  2. TOPAMAX [Concomitant]
     Indication: PAIN

REACTIONS (6)
  - BALANCE DISORDER [None]
  - CENTRAL NERVOUS SYSTEM LESION [None]
  - CONFUSIONAL STATE [None]
  - EPILEPSY [None]
  - FALL [None]
  - MENINGIOMA [None]
